FAERS Safety Report 12397964 (Version 1)
Quarter: 2016Q2

REPORT INFORMATION
  Report Type: Spontaneous
  Country: US (occurrence: None)
  Receive Date: 20160523
  Receipt Date: 20160523
  Transmission Date: 20160815
  Serious: Yes (Hospitalization)
  Sender: FDA-Public Use
  Company Number: None

PATIENT
  Age: 69 Year
  Sex: Female

DRUGS (8)
  1. ATORVASTATIN [Concomitant]
     Active Substance: ATORVASTATIN
  2. IBRUTINIB [Suspect]
     Active Substance: IBRUTINIB
     Indication: LEUKAEMIA
     Route: 048
     Dates: start: 20160223, end: 20160302
  3. BUPROPION. [Concomitant]
     Active Substance: BUPROPION
  4. ALLOPURINOL. [Concomitant]
     Active Substance: ALLOPURINOL
  5. HYDROCHLOROTHIAZIDE. [Concomitant]
     Active Substance: HYDROCHLOROTHIAZIDE
  6. LEVOFLOXACIN. [Concomitant]
     Active Substance: LEVOFLOXACIN
  7. QUETIAPINE. [Concomitant]
     Active Substance: QUETIAPINE
  8. VENLAFAXINE [Concomitant]
     Active Substance: VENLAFAXINE HYDROCHLORIDE

REACTIONS (8)
  - Atrial fibrillation [None]
  - Bronchitis [None]
  - Rash generalised [None]
  - Rash pruritic [None]
  - Rash erythematous [None]
  - Pneumonitis [None]
  - No therapeutic response [None]
  - Abdominal distension [None]

NARRATIVE: CASE EVENT DATE: 20160310
